FAERS Safety Report 9425443 (Version 2)
Quarter: 2013Q4

REPORT INFORMATION
  Report Type: Spontaneous
  Country: US (occurrence: US)
  Receive Date: 20130729
  Receipt Date: 20131015
  Transmission Date: 20140711
  Serious: No
  Sender: FDA-Public Use
  Company Number: US-009507513-1307USA015624

PATIENT
  Sex: Female
  Weight: 48.73 kg

DRUGS (7)
  1. MIRALAX [Suspect]
     Indication: IRRITABLE BOWEL SYNDROME
     Dosage: UNK, UNKNOWN
     Route: 048
     Dates: start: 20130901, end: 20130907
  2. MIRALAX [Suspect]
     Indication: MEDICAL OBSERVATION
     Dosage: 8.5 G, UNKNOWN
     Route: 048
  3. MIRALAX [Suspect]
     Indication: CONSTIPATION
  4. ATENOLOL [Concomitant]
     Indication: HYPERTENSION
     Dosage: UNK, UNKNOWN
  5. LOSARTAN POTASSIUM [Concomitant]
     Indication: HYPERTENSION
     Dosage: UNK, UNKNOWN
  6. NEURONTIN [Concomitant]
     Indication: FACIAL NEURALGIA
     Dosage: UNK, UNKNOWN
  7. BENEFIBER [Concomitant]
     Indication: PRODUCT USED FOR UNKNOWN INDICATION
     Dosage: UNK, UNKNOWN

REACTIONS (4)
  - Product label confusion [Unknown]
  - Off label use [Unknown]
  - Drug ineffective [Unknown]
  - Underdose [Unknown]
